FAERS Safety Report 4820338-3 (Version None)
Quarter: 2005Q4

REPORT INFORMATION
  Report Type: 
  Country: None (occurrence: None)
  Receive Date: 20051014
  Receipt Date: 20050728
  Transmission Date: 20060501
  Serious: No
  Sender: FDA-Public Use
  Company Number: 2005SP002156

PATIENT
  Age: 57 Year
  Sex: Female
  Weight: 106.5953 kg

DRUGS (1)
  1. LUNESTA [Suspect]
     Indication: INSOMNIA
     Dosage: 3 MG;ORAL
     Route: 048
     Dates: start: 20050628, end: 20050707

REACTIONS (2)
  - GINGIVITIS [None]
  - STOMATITIS [None]
